FAERS Safety Report 19493960 (Version 1)
Quarter: 2021Q3

REPORT INFORMATION
  Report Type: Spontaneous
  Country: US (occurrence: US)
  Receive Date: 20210705
  Receipt Date: 20210705
  Transmission Date: 20211014
  Serious: Yes (Hospitalization, Other)
  Sender: FDA-Public Use
  Company Number: US-PFIZER INC-2021784876

PATIENT
  Age: 82 Year
  Sex: Female
  Weight: 79.37 kg

DRUGS (3)
  1. CHOLESTOFF ORIGINAL [Suspect]
     Active Substance: PHYTOSTEROLS
     Indication: NUTRITIONAL SUPPLEMENTATION
     Dosage: 3 DF (SOFTGELS), 1X/DAY (ONCE A DAY)
  2. CHOLESTOFF ORIGINAL [Suspect]
     Active Substance: PHYTOSTEROLS
     Dosage: 3 DF (SOFTGELS), 2X/DAY AT MEALS
     Dates: start: 202105, end: 20210602
  3. CLINDAMYCIN HCL [Suspect]
     Active Substance: CLINDAMYCIN HYDROCHLORIDE
     Indication: DENTAL OPERATION
     Dosage: UNK

REACTIONS (2)
  - Intestinal haemorrhage [Recovered/Resolved]
  - Diarrhoea [Recovered/Resolved]

NARRATIVE: CASE EVENT DATE: 201803
